FAERS Safety Report 19464232 (Version 2)
Quarter: 2021Q2

REPORT INFORMATION
  Report Type: Other
  Country: AT (occurrence: AT)
  Receive Date: 20210626
  Receipt Date: 20210626
  Transmission Date: 20210717
  Serious: Yes (Death, Hospitalization)
  Sender: FDA-Public Use
  Company Number: AT-ROCHE-2849342

PATIENT

DRUGS (14)
  1. RITUXIMAB. [Suspect]
     Active Substance: RITUXIMAB
     Indication: ACQUIRED HAEMOPHILIA
     Dosage: UNK
     Route: 065
  2. RITUXIMAB. [Suspect]
     Active Substance: RITUXIMAB
     Indication: IMMUNOSUPPRESSION
     Dosage: 650 MG (4 DOSES)
     Route: 065
     Dates: start: 20180511, end: 20180525
  3. PREDNISONE. [Suspect]
     Active Substance: PREDNISONE
     Dosage: UNK
     Route: 065
     Dates: start: 20180430, end: 20180614
  4. RITUXIMAB. [Suspect]
     Active Substance: RITUXIMAB
     Indication: ACQUIRED HAEMOPHILIA
     Dosage: MEDIAN 4 DOSES (2?5) AT MEDIAN DOSE OF 2500 MG (1000?5000)
     Route: 065
  5. PREDNISONE. [Suspect]
     Active Substance: PREDNISONE
     Indication: IMMUNOSUPPRESSION
     Dosage: DOSE TAPERING OVER THE FOLLOWING 2 WEEKS
     Route: 065
  6. PREDNISONE. [Suspect]
     Active Substance: PREDNISONE
     Dosage: 1 MG/KG BW FOR 1 WEEK
     Route: 065
  7. EMICIZUMAB. [Suspect]
     Active Substance: EMICIZUMAB
     Indication: ACQUIRED HAEMOPHILIA
     Dosage: DOSE REDUCTION TO 1.5 MG/KG AND INTERVAL PROLONGATION TO UP TO 4 WEEKS WHEN FVIII:H EXCEEDED 10%
     Route: 065
  8. EMICIZUMAB. [Suspect]
     Active Substance: EMICIZUMAB
     Indication: ACQUIRED HAEMOPHILIA
     Dosage: 14/JUN/2018: 105 MG TOTAL 6 APPLICATIONS
     Route: 058
     Dates: start: 20180510, end: 20180614
  9. EMICIZUMAB. [Suspect]
     Active Substance: EMICIZUMAB
     Dosage: 3 MG/KG BODY WEIGHT (FIRST DOSE)
     Route: 058
  10. FEIBA [Concomitant]
     Active Substance: ANTI-INHIBITOR COAGULANT COMPLEX
     Indication: ACQUIRED HAEMOPHILIA
  11. RED BLOOD CELLS, CONCENTRATED [Concomitant]
     Active Substance: HUMAN RED BLOOD CELL
     Indication: ACQUIRED HAEMOPHILIA
  12. EMICIZUMAB. [Suspect]
     Active Substance: EMICIZUMAB
     Dosage: 3 MG/KG BW WEEKLY FOR 2?3 ADDITIONAL DOSES
     Route: 065
  13. EMICIZUMAB. [Suspect]
     Active Substance: EMICIZUMAB
     Dosage: UNK
     Route: 065
  14. FACTOR VIIA [Concomitant]
     Active Substance: COAGULATION FACTOR VIIA HUMAN
     Indication: ACQUIRED HAEMOPHILIA
     Dosage: 606 MG
     Route: 065
     Dates: start: 20180514

REACTIONS (6)
  - Product use in unapproved indication [Fatal]
  - Peritonitis [Fatal]
  - Neutropenic sepsis [Fatal]
  - Intestinal perforation [Fatal]
  - Condition aggravated [Fatal]
  - Inflammatory bowel disease [Fatal]
